FAERS Safety Report 21150881 (Version 2)
Quarter: 2022Q3

REPORT INFORMATION
  Report Type: Spontaneous
  Country: CN (occurrence: None)
  Receive Date: 20220729
  Receipt Date: 20220928
  Transmission Date: 20221027
  Serious: Yes (Hospitalization)
  Sender: FDA-Public Use
  Company Number: 2022A253717

PATIENT
  Age: 50 Year
  Sex: Female

DRUGS (1)
  1. SYMBICORT [Suspect]
     Active Substance: BUDESONIDE\FORMOTEROL FUMARATE DIHYDRATE
     Dosage: 160G/4.5UG, FREQUENCY UNKNOWN UNKNOWN
     Route: 055

REACTIONS (4)
  - Dyspnoea [Recovered/Resolved]
  - Intentional device misuse [Recovered/Resolved]
  - Drug ineffective [Unknown]
  - Product container seal issue [Unknown]
